FAERS Safety Report 4880457-2 (Version None)
Quarter: 2006Q1

REPORT INFORMATION
  Report Type: 
  Country: None (occurrence: None)
  Receive Date: 20060113
  Receipt Date: 20050412
  Transmission Date: 20060701
  Serious: Yes (Hospitalization)
  Sender: FDA-Public Use
  Company Number: US-MERCK-0504USA01891

PATIENT
  Age: 49 Year
  Sex: Female
  Weight: 78 kg

DRUGS (11)
  1. AZMACORT [Concomitant]
     Route: 065
  2. PAXIL [Concomitant]
     Route: 065
  3. HYDRODIURIL [Concomitant]
     Route: 048
  4. MAXAIR [Concomitant]
     Route: 065
  5. TOPROL-XL [Concomitant]
     Route: 065
  6. VASOTEC [Concomitant]
     Route: 048
  7. SYNTHROID [Concomitant]
     Route: 065
  8. NASACORT AQ [Concomitant]
     Route: 065
  9. ACYCLOVIR [Concomitant]
     Route: 065
  10. CALCIUM (UNSPECIFIED) [Concomitant]
     Route: 065
  11. ZOCOR [Suspect]
     Indication: HYPERCHOLESTEROLAEMIA
     Route: 048
     Dates: start: 20020101

REACTIONS (19)
  - ALANINE AMINOTRANSFERASE INCREASED [None]
  - ANXIETY [None]
  - ARTERIOVENOUS FISTULA THROMBOSIS [None]
  - ASPARTATE AMINOTRANSFERASE INCREASED [None]
  - ASTHMA [None]
  - CHEST PAIN [None]
  - DIALYSIS [None]
  - DYSPNOEA [None]
  - FIBRIN D DIMER INCREASED [None]
  - HEADACHE [None]
  - HERPES ZOSTER [None]
  - INFLUENZA [None]
  - PALPITATIONS [None]
  - RENAL FAILURE ACUTE [None]
  - RENAL FAILURE CHRONIC [None]
  - RENAL TUBULAR NECROSIS [None]
  - RHABDOMYOLYSIS [None]
  - STAPHYLOCOCCAL INFECTION [None]
  - VENOUS THROMBOSIS LIMB [None]
